FAERS Safety Report 5300054-4 (Version None)
Quarter: 2007Q2

REPORT INFORMATION
  Report Type: 
  Country: None (occurrence: None)
  Receive Date: 20070410
  Receipt Date: 20070328
  Transmission Date: 20071010
  Serious: Yes (Life-Threatening, Hospitalization)
  Sender: FDA-Public Use
  Company Number: B0441883A

PATIENT
  Age: 33 Year
  Sex: Female

DRUGS (7)
  1. PAXIL [Suspect]
  2. CLOZAPINE [Suspect]
     Indication: SCHIZOPHRENIA
     Dosage: 425 MG ORAL
     Route: 048
     Dates: start: 20020516, end: 20050927
  3. VALPROIC ACID [Suspect]
     Indication: AFFECTIVE DISORDER
     Dosage: 500 MG TWICE PER DAY
     Dates: start: 20050803, end: 20060801
  4. CLOZAPINE [Suspect]
     Indication: SCHIZOPHRENIA
     Dosage: 150 MG PER DAY ORAL
     Route: 048
     Dates: start: 20050928, end: 20060728
  5. AMISULPRIDE [Concomitant]
  6. HYOSCINE HBR HYT [Concomitant]
  7. SENNOSIDES [Concomitant]

REACTIONS (3)
  - IDIOPATHIC THROMBOCYTOPENIC PURPURA [None]
  - SOMNOLENCE [None]
  - TACHYCARDIA [None]
